FAERS Safety Report 5708610-6 (Version None)
Quarter: 2008Q2

REPORT INFORMATION
  Report Type: 
  Country: None (occurrence: None)
  Receive Date: 20080417
  Receipt Date: 20080408
  Transmission Date: 20081010
  Serious: Yes (Death, Hospitalization, Other)
  Sender: FDA-Public Use
  Company Number: NL-SANOFI-SYNTHELABO-A01200802992

PATIENT
  Sex: Male

DRUGS (3)
  1. AVASTIN [Suspect]
     Dosage: UNK
     Route: 065
     Dates: start: 20070914, end: 20070914
  2. OXALIPLATIN [Suspect]
     Indication: RECTAL CANCER
     Dosage: UNK
     Route: 042
     Dates: start: 20070914, end: 20070914
  3. XELODA [Suspect]
     Dosage: UNK
     Route: 065
     Dates: start: 20070914, end: 20070914

REACTIONS (16)
  - APNOEA [None]
  - ARTERIAL THROMBOSIS [None]
  - BLOOD CREATINE PHOSPHOKINASE INCREASED [None]
  - BRADYCARDIA [None]
  - CARDIAC DISORDER [None]
  - CARDIOVASCULAR INSUFFICIENCY [None]
  - COMPARTMENT SYNDROME [None]
  - DIARRHOEA [None]
  - EMBOLISM [None]
  - HYPOTENSION [None]
  - LEG AMPUTATION [None]
  - METABOLIC ACIDOSIS [None]
  - MUCOSAL INFLAMMATION [None]
  - PERIPHERAL ARTERIAL OCCLUSIVE DISEASE [None]
  - PYREXIA [None]
  - RESPIRATORY FAILURE [None]
